FAERS Safety Report 9716486 (Version 2)
Quarter: 2013Q4

REPORT INFORMATION
  Report Type: Spontaneous
  Country: JP (occurrence: JP)
  Receive Date: 20131127
  Receipt Date: 20131213
  Transmission Date: 20140711
  Serious: Yes (Other)
  Sender: FDA-Public Use
  Company Number: JP-TEVA-444886ISR

PATIENT
  Age: 64 Year
  Sex: Female

DRUGS (1)
  1. RANITIDINE HCL,TAB,150MG [Suspect]
     Dates: start: 201302, end: 201302

REACTIONS (1)
  - Drug-induced liver injury [Unknown]
